FAERS Safety Report 4416555-7 (Version None)
Quarter: 2004Q2

REPORT INFORMATION
  Report Type: 
  Country: None (occurrence: None)
  Receive Date: 20040630
  Receipt Date: 20040303
  Transmission Date: 20050107
  Serious: Yes (Hospitalization)
  Sender: FDA-Public Use
  Company Number: 03P-163-0244550-00

PATIENT

DRUGS (16)
  1. HUMIRA [Suspect]
     Indication: RHEUMATOID ARTHRITIS
     Dosage: 40 MG, 1 IN 2 WK, SUBCUTANEOUS
     Route: 058
     Dates: start: 20030724, end: 20031018
  2. FOLIC ACID [Concomitant]
  3. POTASSIUM CHLORIDE [Concomitant]
  4. LATANOPROST [Concomitant]
  5. ALPRAZOLAM [Concomitant]
  6. PROPACET 100 [Concomitant]
  7. METFORMIN HCL [Concomitant]
  8. INDAPAMIDE [Concomitant]
  9. RAMIPRIL [Concomitant]
  10. SERTRALINE HYDROCHLORIDE [Concomitant]
  11. LANSOPRAZOLE [Concomitant]
  12. LEFLUNOMIDE [Concomitant]
  13. METHOTREXATE [Concomitant]
  14. ALENDRONATE SODIUM [Concomitant]
  15. PREDNISONE [Concomitant]
  16. ALENDRONATE SODIUM [Concomitant]

REACTIONS (4)
  - BLOOD POTASSIUM DECREASED [None]
  - DIABETES MELLITUS [None]
  - INFLUENZA [None]
  - PNEUMONIA [None]
